FAERS Safety Report 14599488 (Version 1)
Quarter: 2018Q1

REPORT INFORMATION
  Report Type: Spontaneous
  Country: US (occurrence: US)
  Receive Date: 20180303
  Receipt Date: 20180303
  Transmission Date: 20180509
  Serious: Yes (Other)
  Sender: FDA-Public Use
  Company Number: None

PATIENT
  Age: 50 Year
  Sex: Female

DRUGS (4)
  1. ENBREL [Suspect]
     Active Substance: ETANERCEPT
     Indication: RHEUMATOID ARTHRITIS
     Route: 058
     Dates: start: 20160628
  2. FOLIC ADIC [Concomitant]
  3. METHOTREXATE. [Concomitant]
     Active Substance: METHOTREXATE
  4. ZORVOLEX [Concomitant]
     Active Substance: DICLOFENAC

REACTIONS (2)
  - Intervertebral disc protrusion [None]
  - Drug dose omission [None]

NARRATIVE: CASE EVENT DATE: 2018
